FAERS Safety Report 13172698 (Version 1)
Quarter: 2017Q1

REPORT INFORMATION
  Report Type: Report from Study
  Country: AU (occurrence: AU)
  Receive Date: 20170201
  Receipt Date: 20170201
  Transmission Date: 20170428
  Serious: Yes (Hospitalization)
  Sender: FDA-Public Use
  Company Number: AU-MYLANLABS-2017M1005362

PATIENT

DRUGS (8)
  1. CLOZAPINE. [Suspect]
     Active Substance: CLOZAPINE
     Dosage: UNK
     Route: 048
     Dates: start: 20150119
  2. THIAMINE. [Concomitant]
     Active Substance: THIAMINE
     Indication: VITAMIN B1
     Dosage: 100 MG, AM
     Route: 048
  3. METFORMIN [Suspect]
     Active Substance: METFORMIN HYDROCHLORIDE
     Indication: DIABETES MELLITUS
     Dosage: 500 MG, BID
     Route: 048
  4. CLOZAPINE. [Suspect]
     Active Substance: CLOZAPINE
     Dosage: 375 MG, UNK
     Route: 048
     Dates: start: 20150828
  5. PALIPERIDONE. [Concomitant]
     Active Substance: PALIPERIDONE
     Indication: SCHIZOPHRENIA
     Dosage: UNK
     Route: 030
  6. CLOZAPINE. [Suspect]
     Active Substance: CLOZAPINE
     Indication: PSYCHOTIC DISORDER
     Dosage: 400 MG, PM
     Route: 048
     Dates: start: 20010301
  7. VITAMIN B [Suspect]
     Active Substance: VITAMIN B
     Indication: PRODUCT USED FOR UNKNOWN INDICATION
     Dosage: 100 MG, QD
     Route: 065
  8. CLOZAPINE. [Suspect]
     Active Substance: CLOZAPINE
     Indication: SCHIZOPHRENIA
     Dosage: 12.5 MG, AM
     Route: 048
     Dates: start: 20150109

REACTIONS (15)
  - Blood lactate dehydrogenase decreased [Recovered/Resolved]
  - Mean cell volume decreased [Recovered/Resolved]
  - Blood creatinine decreased [Recovered/Resolved]
  - Mental impairment [Unknown]
  - Malaise [Unknown]
  - Blood sodium decreased [Recovered/Resolved]
  - Drug dose omission [Unknown]
  - Blood chloride decreased [Recovered/Resolved]
  - Antipsychotic drug level decreased [Unknown]
  - White blood cell count increased [Recovered/Resolved]
  - Blood glucose increased [Recovered/Resolved]
  - Gamma-glutamyltransferase increased [Recovered/Resolved]
  - Blood alkaline phosphatase increased [Recovered/Resolved]
  - C-reactive protein increased [Recovered/Resolved]
  - Neutrophil count increased [Recovered/Resolved]

NARRATIVE: CASE EVENT DATE: 20130429
